FAERS Safety Report 14236570 (Version 1)
Quarter: 2017Q4

REPORT INFORMATION
  Report Type: Spontaneous
  Country: US (occurrence: US)
  Receive Date: 20171129
  Receipt Date: 20171129
  Transmission Date: 20180321
  Serious: No
  Sender: FDA-Public Use
  Company Number: US-PFIZER INC-2017510823

PATIENT
  Age: 56 Year
  Sex: Female

DRUGS (10)
  1. ERYTHROMYCIN. [Suspect]
     Active Substance: ERYTHROMYCIN
  2. VANCOMYCIN HCL [Suspect]
     Active Substance: VANCOMYCIN HYDROCHLORIDE
  3. AMPICILLIN SODIUM. [Suspect]
     Active Substance: AMPICILLIN SODIUM
  4. CEPHALEXIN. [Suspect]
     Active Substance: CEPHALEXIN
  5. IBUPROFEN. [Suspect]
     Active Substance: IBUPROFEN
  6. BACTRIM [Suspect]
     Active Substance: SULFAMETHOXAZOLE\TRIMETHOPRIM
  7. LEVAQUIN [Suspect]
     Active Substance: LEVOFLOXACIN
  8. TYLENOL [Suspect]
     Active Substance: ACETAMINOPHEN
  9. AMOXICILLIN. [Suspect]
     Active Substance: AMOXICILLIN
  10. OXYCODONE [Suspect]
     Active Substance: OXYCODONE

REACTIONS (1)
  - Drug hypersensitivity [Unknown]
